FAERS Safety Report 8444690-5 (Version None)
Quarter: 2012Q2

REPORT INFORMATION
  Report Type: 
  Country: None (occurrence: None)
  Receive Date: 20120323
  Receipt Date: 20111215
  Transmission Date: 20120825
  Serious: Yes (Other)
  Sender: FDA-Public Use
  Company Number: 163-21880-11063027

PATIENT
  Age: 75 Year
  Sex: Male

DRUGS (2)
  1. TELINTRA (ALL OTHER THERAPEUTIC PRODUCTS) [Concomitant]
  2. REVLIMID [Suspect]
     Indication: MYELODYSPLASTIC SYNDROME
     Dosage: 10 MG, DAILY FOR 21 DAYS Q 28 DAYS, PO
     Route: 048
     Dates: start: 20110516, end: 20110606

REACTIONS (4)
  - MYELODYSPLASTIC SYNDROME TRANSFORMATION [None]
  - NEUTROPHIL COUNT DECREASED [None]
  - ACUTE MYELOID LEUKAEMIA [None]
  - WHITE BLOOD CELL COUNT DECREASED [None]
